FAERS Safety Report 5626744-1 (Version None)
Quarter: 2008Q1

REPORT INFORMATION
  Report Type: 
  Country: None (occurrence: None)
  Receive Date: 20080214
  Receipt Date: 20080204
  Transmission Date: 20080703
  Serious: Yes (Death, Other)
  Sender: FDA-Public Use
  Company Number: US-PFIZER INC-2008005791

PATIENT
  Sex: Female

DRUGS (3)
  1. LIPITOR [Suspect]
     Dosage: FREQ:DAILY: EVERY DAY
  2. NORVASC [Suspect]
     Dates: start: 20070716
  3. DIABINESE [Suspect]

REACTIONS (4)
  - DYSURIA [None]
  - NEOPLASM [None]
  - OVARIAN CANCER [None]
  - PULMONARY OEDEMA [None]
